FAERS Safety Report 10568569 (Version 1)
Quarter: 2014Q4

REPORT INFORMATION
  Report Type: Spontaneous
  Country: DK (occurrence: FR)
  Receive Date: 20141106
  Receipt Date: 20141106
  Transmission Date: 20150529
  Serious: Yes (Hospitalization)
  Sender: FDA-Public Use
  Company Number: FR-FRI-1000072036

PATIENT
  Age: 82 Year
  Sex: Female

DRUGS (3)
  1. CITALOPRAM [Suspect]
     Active Substance: CITALOPRAM HYDROBROMIDE
     Dosage: 1 DF DOSAGE FORM
     Route: 048
  2. PREVISCAN [Concomitant]
     Active Substance: FLUINDIONE
  3. CORDARONE [Concomitant]
     Active Substance: AMIODARONE HYDROCHLORIDE

REACTIONS (2)
  - Fall [Recovered/Resolved with Sequelae]
  - Clavicle fracture [Recovered/Resolved with Sequelae]

NARRATIVE: CASE EVENT DATE: 20120616
